FAERS Safety Report 9703611 (Version 2)
Quarter: 2013Q4

REPORT INFORMATION
  Report Type: Spontaneous
  Country: US (occurrence: US)
  Receive Date: 20131122
  Receipt Date: 20131230
  Transmission Date: 20140711
  Serious: No
  Sender: FDA-Public Use
  Company Number: US-PFIZER INC-2013332556

PATIENT
  Age: 67 Year
  Sex: Female

DRUGS (17)
  1. METHOTREXATE SODIUM [Suspect]
     Dosage: UNK
  2. METRONIDAZOLE [Suspect]
     Dosage: UNK
  3. SULFASALAZINE [Suspect]
     Dosage: UNK
  4. IBUPROFEN [Suspect]
  5. HUMIRA [Suspect]
     Dosage: UNK
  6. CIPRO [Suspect]
     Dosage: UNK
  7. CODEINE [Suspect]
     Dosage: UNK
  8. ARAVA [Suspect]
     Dosage: UNK
  9. ACTEMRA [Suspect]
     Dosage: UNK
  10. DEMEROL [Suspect]
     Dosage: UNK
  11. HYDROCODONE [Suspect]
     Dosage: UNK
  12. KINERET [Suspect]
     Dosage: UNK
  13. LEVAQUIN [Suspect]
     Dosage: UNK
  14. NAPROSYN [Suspect]
     Dosage: UNK
  15. PLAQUENIL [Suspect]
     Dosage: UNK
  16. RELAFEN [Suspect]
     Dosage: UNK
  17. SULINDAC [Suspect]
     Dosage: UNK

REACTIONS (1)
  - Drug hypersensitivity [Unknown]
